FAERS Safety Report 24743510 (Version 1)
Quarter: 2024Q4

REPORT INFORMATION
  Report Type: Spontaneous
  Country: CN (occurrence: CN)
  Receive Date: 20241217
  Receipt Date: 20241217
  Transmission Date: 20250115
  Serious: Yes (Hospitalization, Other)
  Sender: BAXTER
  Company Number: None

PATIENT
  Age: 3 Year
  Sex: Female
  Weight: 17.2 kg

DRUGS (13)
  1. CYCLOPHOSPHAMIDE [Suspect]
     Active Substance: CYCLOPHOSPHAMIDE
     Indication: Pelvic neoplasm
     Dosage: 0.84 G, ONE TIME IN ONE DAY DILUTED WITH 250 ML 4:1 GLUCOSE AND SODIUM CHLORIDE INJECTION
     Route: 041
     Dates: start: 20241025, end: 20241026
  2. CYCLOPHOSPHAMIDE [Suspect]
     Active Substance: CYCLOPHOSPHAMIDE
     Indication: Rhabdomyosarcoma
  3. CYCLOPHOSPHAMIDE [Suspect]
     Active Substance: CYCLOPHOSPHAMIDE
     Indication: Chemotherapy
  4. DEXTROSE [Suspect]
     Active Substance: DEXTROSE MONOHYDRATE
     Indication: Medication dilution
     Dosage: 250 ML 4:1, ONE TIME IN ONE DAY USED TO DILUTE 0.84 G OF CYCLOPHOSPHAMIDE
     Route: 041
     Dates: start: 20241025
  5. SODIUM CHLORIDE [Suspect]
     Active Substance: SODIUM CHLORIDE
     Indication: Medication dilution
     Dosage: 250 ML 4:1, ONE TIME IN ONE DAY USED TO DILUTE 0.84 G OF CYCLOPHOSPHAMIDE
     Route: 041
     Dates: start: 20241025
  6. SODIUM CHLORIDE [Suspect]
     Active Substance: SODIUM CHLORIDE
     Dosage: 250 ML 0.9% SODIUM CHLORIDE ONE TIME IN ONE DAY USED TO DILUTE EPIRUBICIN HYDROCHLORIDE 21 MG
     Route: 041
     Dates: start: 20241025
  7. SODIUM CHLORIDE [Suspect]
     Active Substance: SODIUM CHLORIDE
     Dosage: 50 ML 0.9% SODIUM CHLORIDE INJECTION ONE TIME IN ONE DAY USED TO DILUTE VINDESINE SULFATE 2.1 MG
     Route: 041
     Dates: start: 20241025
  8. EPIRUBICIN [Suspect]
     Active Substance: EPIRUBICIN
     Indication: Pelvic neoplasm
     Dosage: 21 MG, ONE TIME IN ONE DAY DILUTED WITH 250ML 0.9% SODIUM CHLORIDE
     Route: 041
     Dates: start: 20241025, end: 20241026
  9. EPIRUBICIN [Suspect]
     Active Substance: EPIRUBICIN
     Indication: Rhabdomyosarcoma
  10. EPIRUBICIN [Suspect]
     Active Substance: EPIRUBICIN
     Indication: Chemotherapy
  11. VINDESINE SULFATE [Suspect]
     Active Substance: VINDESINE SULFATE
     Indication: Pelvic neoplasm
     Dosage: 2.1 MG, ONE TIME IN ONE DAY DILUTED WITH VINDESINE SULFATE 2.1 MG
     Route: 041
     Dates: start: 20241025, end: 20241025
  12. VINDESINE SULFATE [Suspect]
     Active Substance: VINDESINE SULFATE
     Indication: Rhabdomyosarcoma
  13. VINDESINE SULFATE [Suspect]
     Active Substance: VINDESINE SULFATE
     Indication: Chemotherapy

REACTIONS (1)
  - Myelosuppression [Recovering/Resolving]

NARRATIVE: CASE EVENT DATE: 20241104
